FAERS Safety Report 22295745 (Version 1)
Quarter: 2023Q2

REPORT INFORMATION
  Report Type: Spontaneous
  Country: US (occurrence: None)
  Receive Date: 20230505
  Receipt Date: 20230505
  Transmission Date: 20230721
  Serious: No
  Sender: FDA-Public Use
  Company Number: None

PATIENT
  Sex: Female

DRUGS (1)
  1. TEMOZOLOMIDE [Suspect]
     Active Substance: TEMOZOLOMIDE
     Indication: Brain neoplasm malignant
     Dosage: 5MG FREQUENCY: TAKE 2 CAPSULES BY MOUTH 1 TIME A DAY AT BEDTIME FOR 5 DAYS OF A 30 DAY CYCLE. 140MG
     Route: 048
     Dates: start: 20221114

REACTIONS (2)
  - Drug ineffective [None]
  - Therapy cessation [None]
